FAERS Safety Report 4513515-2 (Version None)
Quarter: 2004Q4

REPORT INFORMATION
  Report Type: 
  Country: None (occurrence: None)
  Receive Date: 20041130
  Receipt Date: 20041126
  Transmission Date: 20050328
  Serious: Yes (Death)
  Sender: FDA-Public Use
  Company Number: ES-JNJFOC-20041106223

PATIENT
  Age: 43 Year
  Sex: Male
  Weight: 100 kg

DRUGS (4)
  1. RISPERDAL CONSTA [Suspect]
     Indication: SCHIZOPHRENIA
     Route: 030
  2. CISORDINOL DEPOT [Suspect]
     Indication: SCHIZOPHRENIA
     Route: 030
  3. SINOGAN [Suspect]
     Indication: SCHIZOPHRENIA
     Route: 049
  4. AKINETON [Concomitant]
     Route: 049

REACTIONS (1)
  - DEATH [None]
